FAERS Safety Report 5130346-3 (Version None)
Quarter: 2006Q4

REPORT INFORMATION
  Report Type: 
  Country: None (occurrence: None)
  Receive Date: 20061019
  Receipt Date: 20060922
  Transmission Date: 20070319
  Serious: Yes (Life-Threatening, Disabling)
  Sender: FDA-Public Use
  Company Number: FR-BRISTOL-MYERS SQUIBB COMPANY-13521455

PATIENT
  Age: 49 Year
  Sex: Male
  Weight: 79 kg

DRUGS (5)
  1. VASTEN [Suspect]
     Indication: HYPERCHOLESTEROLAEMIA
     Route: 048
     Dates: start: 20020322, end: 20060919
  2. CLOPIDOGREL BISULFATE [Suspect]
  3. PRAVASTATIN SODIUM [Suspect]
  4. ASPIRIN [Concomitant]
     Indication: ANGINA PECTORIS
     Dates: start: 20011126
  5. TENORMIN [Concomitant]
     Dates: start: 20011126

REACTIONS (5)
  - BLOOD CREATINE PHOSPHOKINASE INCREASED [None]
  - FATIGUE [None]
  - MUSCULAR WEAKNESS [None]
  - MYALGIA [None]
  - TRANSAMINASES INCREASED [None]
